FAERS Safety Report 5052907-2 (Version None)
Quarter: 2006Q3

REPORT INFORMATION
  Report Type: 
  Country: None (occurrence: None)
  Receive Date: 20060712
  Receipt Date: 20060712
  Transmission Date: 20061208
  Serious: Yes (Hospitalization)
  Sender: FDA-Public Use
  Company Number: None

PATIENT
  Sex: Female

DRUGS (2)
  1. ERBITUX [Suspect]
     Indication: NEOPLASM MALIGNANT
     Dosage: 432 MG IV EVERY WEEK
     Route: 042
     Dates: start: 20060613
  2. ALIMTA [Suspect]
     Dosage: 346 MG EVERY 3 WEEKS IV
     Route: 042
     Dates: start: 20060620

REACTIONS (3)
  - CHILLS [None]
  - PAIN [None]
  - PYREXIA [None]
